FAERS Safety Report 17543767 (Version 4)
Quarter: 2020Q2

REPORT INFORMATION
  Report Type: Report from Study
  Country: US (occurrence: US)
  Receive Date: 20200316
  Receipt Date: 20200615
  Transmission Date: 20200713
  Serious: Yes (Other)
  Sender: FDA-Public Use
  Company Number: US-ROCHE-2554017

PATIENT
  Sex: Male

DRUGS (4)
  1. SUCRALFATE. [Concomitant]
     Active Substance: SUCRALFATE
  2. ESBRIET [Suspect]
     Active Substance: PIRFENIDONE
     Indication: IDIOPATHIC PULMONARY FIBROSIS
     Route: 065
     Dates: start: 20191118
  3. ESBRIET [Suspect]
     Active Substance: PIRFENIDONE
     Dosage: ONE THREE TIMES A DAY: ONGOING:YES
     Route: 065
     Dates: start: 202001
  4. PANTOPRAZOLE [Concomitant]
     Active Substance: PANTOPRAZOLE

REACTIONS (10)
  - Diabetes mellitus [Not Recovered/Not Resolved]
  - Blood glucose decreased [Recovered/Resolved]
  - Dyspepsia [Unknown]
  - Gastrooesophageal reflux disease [Unknown]
  - Hiccups [Unknown]
  - Diarrhoea [Recovered/Resolved with Sequelae]
  - Hiatus hernia [Unknown]
  - Ulcer [Unknown]
  - Nausea [Unknown]
  - Eructation [Unknown]
